FAERS Safety Report 8584475-2 (Version None)
Quarter: 2012Q3

REPORT INFORMATION
  Report Type: 
  Country: None (occurrence: None)
  Receive Date: 20120810
  Receipt Date: 20120807
  Transmission Date: 20120928
  Serious: No
  Sender: FDA-Public Use
  Company Number: US-PFIZER INC-2012193113

PATIENT
  Sex: Female

DRUGS (2)
  1. LAMICTAL [Concomitant]
     Dosage: UNK
  2. EFFEXOR [Suspect]
     Dosage: UNK

REACTIONS (1)
  - DRUG WITHDRAWAL SYNDROME [None]
